FAERS Safety Report 8358814-1 (Version None)
Quarter: 2012Q2

REPORT INFORMATION
  Report Type: 
  Country: None (occurrence: None)
  Receive Date: 20120514
  Receipt Date: 20120501
  Transmission Date: 20120825
  Serious: Yes (Death, Life-Threatening, Hospitalization, Other)
  Sender: FDA-Public Use
  Company Number: US-MYLANLABS-2009AC000270

PATIENT
  Sex: Male
  Weight: 77.11 kg

DRUGS (44)
  1. COUMADIN [Concomitant]
     Dosage: 6MG ALTERNATING WITH 3MG
  2. PAROXETINE HCL [Concomitant]
  3. LIPITOR [Concomitant]
  4. OCUFLOX [Concomitant]
  5. SODIUM CHLORIDE [Concomitant]
  6. AMOXICILLIN [Concomitant]
  7. CUTIVATE [Concomitant]
  8. NEURONTIN [Concomitant]
  9. POTASSIUM CHLORIDE [Concomitant]
  10. MACROBID [Concomitant]
     Dosage: 1 BID FOR THE NEXT 10 DAYS
  11. PAXIL [Concomitant]
  12. ACCUPRIL [Concomitant]
  13. MEPHYTON [Concomitant]
  14. FINASTERIDE [Concomitant]
  15. PROSCAR [Concomitant]
  16. POTASSIUM CHLORIDE [Concomitant]
  17. LOVENOX [Concomitant]
  18. VITAMIN K TAB [Concomitant]
  19. FERROUS SULFATE TAB [Concomitant]
  20. GABAPENTIN [Concomitant]
  21. GLIPIZIDE [Concomitant]
  22. LANTUS [Concomitant]
  23. MULTI-VITAMIN [Concomitant]
  24. DIGOXIN [Suspect]
     Route: 048
     Dates: start: 20001122, end: 20060917
  25. PREDNISOLONE [Concomitant]
  26. ALBUTEROL [Concomitant]
  27. METFORMIN HCL [Concomitant]
  28. PLAVIX [Concomitant]
  29. PERCOCET [Concomitant]
  30. AUGMENTIN XR [Concomitant]
  31. GABAPENTIN [Concomitant]
     Route: 048
  32. FUROSEMIDE [Concomitant]
  33. PENICILLIN VK [Concomitant]
  34. WARFARIN SODIUM [Concomitant]
  35. ACULAR [Concomitant]
  36. ZAROXOLYN [Concomitant]
  37. GLUCOTROL [Concomitant]
  38. CIPROFLOXACIN HCL [Concomitant]
  39. SANTYL [Concomitant]
  40. ECONAZOLE NITRATE [Concomitant]
  41. NITROFURANTOIN MONOHYDRATE/MACROCRYSTALS [Concomitant]
  42. NOVOLOG [Concomitant]
  43. ROCEPHIN [Concomitant]
  44. TYLENOL (CAPLET) [Concomitant]

REACTIONS (87)
  - ILL-DEFINED DISORDER [None]
  - DEATH [None]
  - DYSPNOEA [None]
  - DIVERTICULITIS [None]
  - ISCHAEMIC CARDIOMYOPATHY [None]
  - CHEST X-RAY ABNORMAL [None]
  - DIABETIC FOOT INFECTION [None]
  - FEMORAL ARTERY OCCLUSION [None]
  - LEG AMPUTATION [None]
  - PYREXIA [None]
  - PNEUMONIA [None]
  - ANAEMIA [None]
  - DIABETES MELLITUS [None]
  - FAILURE TO THRIVE [None]
  - HEART RATE IRREGULAR [None]
  - WOUND INFECTION [None]
  - INJURY [None]
  - VENTRICULAR FIBRILLATION [None]
  - HAEMATURIA [None]
  - MENTAL STATUS CHANGES [None]
  - APHASIA [None]
  - SOMNOLENCE [None]
  - LETHARGY [None]
  - PROTHROMBIN LEVEL INCREASED [None]
  - CELLULITIS [None]
  - ATELECTASIS [None]
  - COUGH [None]
  - VIITH NERVE PARALYSIS [None]
  - SKIN WARM [None]
  - ECONOMIC PROBLEM [None]
  - CARDIO-RESPIRATORY ARREST [None]
  - CYANOSIS [None]
  - PUPIL FIXED [None]
  - CARDIAC FAILURE CONGESTIVE [None]
  - DEPRESSED LEVEL OF CONSCIOUSNESS [None]
  - SEPSIS [None]
  - DEMENTIA [None]
  - CAROTID ENDARTERECTOMY [None]
  - PLEURAL EFFUSION [None]
  - CHEST PAIN [None]
  - COMPUTERISED TOMOGRAM ABNORMAL [None]
  - ENDARTERECTOMY [None]
  - LOCAL SWELLING [None]
  - OSTEOPENIA [None]
  - SCAN MYOCARDIAL PERFUSION ABNORMAL [None]
  - WOUND DRAINAGE [None]
  - URINARY TRACT INFECTION [None]
  - GANGRENE [None]
  - BREATH SOUNDS ABNORMAL [None]
  - PULMONARY CONGESTION [None]
  - UNRESPONSIVE TO STIMULI [None]
  - CARDIOMEGALY [None]
  - DYSARTHRIA [None]
  - CHRONIC OBSTRUCTIVE PULMONARY DISEASE [None]
  - CEREBROVASCULAR ACCIDENT [None]
  - ABDOMINAL TENDERNESS [None]
  - ACTIVITIES OF DAILY LIVING IMPAIRED [None]
  - BRONCHITIS [None]
  - CHOKING [None]
  - HYPOPHAGIA [None]
  - PULSE ABSENT [None]
  - LIVEDO RETICULARIS [None]
  - DYSPHAGIA [None]
  - PROSTATOMEGALY [None]
  - BLOOD POTASSIUM DECREASED [None]
  - GASTROENTERITIS VIRAL [None]
  - ATRIAL FIBRILLATION [None]
  - VOMITING [None]
  - BRADYCARDIA [None]
  - ANAEMIA POSTOPERATIVE [None]
  - BRADYARRHYTHMIA [None]
  - DIARRHOEA [None]
  - EXOSTOSIS [None]
  - FEMORAL ARTERIAL STENOSIS [None]
  - CARDIAC ARREST [None]
  - BUNDLE BRANCH BLOCK RIGHT [None]
  - INTERNATIONAL NORMALISED RATIO INCREASED [None]
  - ARTERIOSCLEROSIS [None]
  - BLOOD CULTURE POSITIVE [None]
  - CARDIAC MURMUR [None]
  - DEHYDRATION [None]
  - ERYTHEMA [None]
  - GAIT DISTURBANCE [None]
  - LUNG INFILTRATION [None]
  - OEDEMA PERIPHERAL [None]
  - RHONCHI [None]
  - WHEEZING [None]
